FAERS Safety Report 24670181 (Version 2)
Quarter: 2024Q4

REPORT INFORMATION
  Report Type: Spontaneous
  Country: US (occurrence: US)
  Receive Date: 20241127
  Receipt Date: 20241226
  Transmission Date: 20250114
  Serious: Yes (Hospitalization, Other)
  Sender: BLUEPRINT MEDICINES
  Company Number: US-Blueprint Medicines Corporation-5434

PATIENT
  Age: 87 Year
  Sex: Male

DRUGS (4)
  1. AYVAKIT [Suspect]
     Active Substance: AVAPRITINIB
     Indication: Systemic mastocytosis
     Dosage: 100MG DAILY
     Route: 065
     Dates: start: 20230104, end: 20241115
  2. AYVAKIT [Suspect]
     Active Substance: AVAPRITINIB
     Dosage: 100MG DAILY
     Route: 065
     Dates: start: 20230104
  3. LOSARTAN [Concomitant]
     Active Substance: LOSARTAN
     Indication: Gastrointestinal haemorrhage
  4. PROTONIX [Concomitant]
     Active Substance: PANTOPRAZOLE SODIUM
     Indication: Gastrointestinal haemorrhage

REACTIONS (4)
  - Gastrointestinal ulcer haemorrhage [Unknown]
  - Chronic myelomonocytic leukaemia [Unknown]
  - Platelet count decreased [Unknown]
  - Blood glucose increased [Unknown]

NARRATIVE: CASE EVENT DATE: 20241116
